FAERS Safety Report 4670205-3 (Version None)
Quarter: 2005Q2

REPORT INFORMATION
  Report Type: 
  Country: None (occurrence: None)
  Receive Date: 20050523
  Receipt Date: 20050506
  Transmission Date: 20051028
  Serious: Yes (Hospitalization, Other)
  Sender: FDA-Public Use
  Company Number: 2005-0008320

PATIENT
  Age: 52 Year
  Sex: Male
  Weight: 77 kg

DRUGS (5)
  1. TRUVADA [Suspect]
     Indication: HIV INFECTION
     Dosage: ORAL
     Route: 048
     Dates: start: 20050414, end: 20050419
  2. TENOFOVIR DISOPROXIL FUMARATE (TENOFOVIR DISOPROXIL FUMARATE) [Suspect]
     Indication: HIV INFECTION
     Dosage: 300 MG, ORAL
     Route: 048
     Dates: start: 20030901, end: 20050201
  3. AZT [Concomitant]
  4. ATAZANAVIR (ATAZANAVIR) [Concomitant]
  5. RITONAVIR (RITONAVIR) [Concomitant]

REACTIONS (5)
  - ASTHENIA [None]
  - BLOOD CREATININE INCREASED [None]
  - CONDITION AGGRAVATED [None]
  - DIARRHOEA [None]
  - HEPATITIS [None]
